FAERS Safety Report 5766416-6 (Version None)
Quarter: 2008Q2

REPORT INFORMATION
  Report Type: 
  Country: None (occurrence: None)
  Receive Date: 20080611
  Receipt Date: 20080530
  Transmission Date: 20081010
  Serious: Yes (Hospitalization)
  Sender: FDA-Public Use
  Company Number: US-BOEHRINGER INGELHEIM GMBH, GERMANY-2007-BP-23816BP

PATIENT
  Sex: Male
  Weight: 76 kg

DRUGS (80)
  1. MIRAPEX [Suspect]
     Indication: PARKINSON'S DISEASE
     Dates: start: 19970903, end: 20070801
  2. MIRAPEX [Suspect]
     Indication: RESTLESS LEGS SYNDROME
  3. NEUPRO [Concomitant]
     Indication: PARKINSON'S DISEASE
  4. NEUPRO [Concomitant]
     Dates: start: 20070801
  5. COMTAN [Concomitant]
     Indication: PARKINSON'S DISEASE
     Dates: start: 20020213, end: 20030203
  6. COMTAN [Concomitant]
     Dates: start: 20060101
  7. AMANTADINE HCL [Concomitant]
     Dates: start: 19990601
  8. AMANTADINE HCL [Concomitant]
     Dates: start: 20050601
  9. CARBIDOPA LEVIDOPA [Concomitant]
     Indication: PARKINSON'S DISEASE
  10. CARBIDOPA LEVIDOPA [Concomitant]
     Dates: start: 19990601, end: 20010322
  11. AZILECT [Concomitant]
     Indication: PARKINSON'S DISEASE
     Dates: start: 20061121
  12. ZOCOR [Concomitant]
     Indication: BLOOD CHOLESTEROL INCREASED
     Dates: start: 19990921
  13. ARTHROTEC [Concomitant]
  14. DIPYRIDAMOLE [Concomitant]
     Dates: start: 19990601
  15. BECLOMETHASONE DIPROPIONATE [Concomitant]
  16. NITROGLYCERIN [Concomitant]
     Indication: CHEST PAIN
     Route: 060
     Dates: start: 19990901
  17. NITROGLYCERIN [Concomitant]
     Dates: start: 20011227
  18. ELDEPRUL [Concomitant]
     Dates: start: 19991108, end: 20020213
  19. HYDROCORTISONE/PRAMOXINE [Concomitant]
  20. ASPIRIN [Concomitant]
     Indication: CORONARY ARTERY DISEASE
     Dates: start: 19990921
  21. PIROXICAM [Concomitant]
  22. AZITHROMYCIN [Concomitant]
  23. FEXOFENADINE [Concomitant]
     Dates: start: 20001201
  24. SINEMET CR [Concomitant]
     Dates: start: 20010321, end: 20031203
  25. SINEMET CR [Concomitant]
     Dates: start: 20030325
  26. FLUNISOLIDE [Concomitant]
  27. ACETAMINOPHEN [Concomitant]
  28. AMOXICILLIN [Concomitant]
  29. CAPSAICIN [Concomitant]
     Indication: HYPOAESTHESIA
     Dates: start: 20010628
  30. BUPROPION HCL [Concomitant]
  31. DICLOFENAC SODIUM [Concomitant]
     Indication: ARTHRALGIA
     Dates: start: 19980101
  32. PRIMIDONE [Concomitant]
     Indication: PARKINSON'S DISEASE
     Dates: start: 20040816
  33. PRIMIDONE [Concomitant]
     Dates: start: 20060401
  34. OMEPRAZOLE [Concomitant]
     Indication: GASTROOESOPHAGEAL REFLUX DISEASE
     Dates: start: 20040801
  35. LORATADINE [Concomitant]
     Indication: HYPERSENSITIVITY
     Dates: start: 20051001
  36. LORATADINE [Concomitant]
     Indication: SINUS DISORDER
  37. AMITRIPTYLINE HCL [Concomitant]
  38. VARDENAFIL [Concomitant]
     Dates: start: 20070901
  39. HYDROCODONE [Concomitant]
     Dates: start: 20000801
  40. CEPHALEXIN [Concomitant]
  41. WELLBUTRIN [Concomitant]
     Indication: PARKINSON'S DISEASE
     Dates: start: 20020924
  42. WELLBUTRIN [Concomitant]
     Dates: start: 20020213, end: 20020924
  43. ULTRACET [Concomitant]
     Dates: start: 20020601
  44. VIOXX [Concomitant]
     Dates: start: 20020601
  45. MARGESIC [Concomitant]
  46. METHYLPREDNISOLONE [Concomitant]
  47. ZETIA [Concomitant]
     Dates: start: 20030201
  48. NYSTATIN [Concomitant]
  49. NEURONTIN [Concomitant]
     Dates: start: 20030604
  50. VIAGRA [Concomitant]
     Indication: ERECTILE DYSFUNCTION
     Dates: start: 20030325
  51. VICOPROFEN [Concomitant]
     Dates: start: 20030601
  52. METHOCARBAM [Concomitant]
     Dates: start: 20040101
  53. SMZ-TMP DS [Concomitant]
  54. HYOSCYAMINE [Concomitant]
  55. NAPROXEN [Concomitant]
     Dates: start: 20061001
  56. MELOXICAM [Concomitant]
     Dates: start: 20061101
  57. PRIMIDONE [Concomitant]
  58. CAPSAZEN CREAM [Concomitant]
  59. ALLERGY SINUS [Concomitant]
  60. IBUROFEN [Concomitant]
  61. VITAMINS [Concomitant]
     Dates: start: 20030101
  62. PRILOSEC [Concomitant]
  63. LUNESTA [Concomitant]
  64. ARICEPT [Concomitant]
     Dates: end: 20040101
  65. SINEMET [Concomitant]
     Dates: start: 19990601
  66. WELLBUTRIN SR [Concomitant]
     Dates: start: 20020213, end: 20020924
  67. WELLBUTRIN SR [Concomitant]
     Dates: start: 20020924
  68. PERSANTINE [Concomitant]
     Dates: start: 19990601
  69. LIPITOR [Concomitant]
     Dates: start: 19980101
  70. STALEVO 100 [Concomitant]
     Dates: start: 20031203, end: 20040204
  71. STALEVO 100 [Concomitant]
     Dates: start: 20040204
  72. SIMVASTIN [Concomitant]
     Dates: start: 19990601
  73. ELAVIL [Concomitant]
     Indication: INSOMNIA
     Dates: start: 20070628
  74. HYALGAN [Concomitant]
     Indication: ARTHRALGIA
     Dates: start: 20051001, end: 20051101
  75. TYLENOL [Concomitant]
     Dates: start: 20010628
  76. FELDENE [Concomitant]
     Indication: MUSCULOSKELETAL PAIN
     Dates: start: 20011227
  77. ARTHROTEC [Concomitant]
     Indication: SPONDYLOLYSIS
     Dates: start: 19890101
  78. PNEUMO-VAC [Concomitant]
     Dates: start: 20040419
  79. SERTRALINE HCL [Concomitant]
     Dates: start: 19991201
  80. SERTRALINE HCL [Concomitant]
     Dates: start: 20000401

REACTIONS (6)
  - DEPRESSION [None]
  - HYPERPHAGIA [None]
  - HYPERSEXUALITY [None]
  - OBSESSIVE-COMPULSIVE DISORDER [None]
  - PATHOLOGICAL GAMBLING [None]
  - WEIGHT INCREASED [None]
